FAERS Safety Report 17531413 (Version 1)
Quarter: 2020Q1

REPORT INFORMATION
  Report Type: Spontaneous
  Country: US (occurrence: US)
  Receive Date: 20200312
  Receipt Date: 20200312
  Transmission Date: 20200409
  Serious: No
  Sender: FDA-Public Use
  Company Number: US-BAYER-2020-043353

PATIENT
  Age: 87 Year
  Sex: Female

DRUGS (1)
  1. MIRALAX [Suspect]
     Active Substance: POLYETHYLENE GLYCOL 3350
     Indication: GASTROINTESTINAL DISORDER
     Dosage: 0.5 DF, BIW
     Route: 048

REACTIONS (4)
  - Product package associated injury [None]
  - Product prescribing error [Unknown]
  - Product packaging difficult to open [None]
  - Incorrect dose administered [Unknown]

NARRATIVE: CASE EVENT DATE: 20200310
